FAERS Safety Report 7729919 (Version 9)
Quarter: 2013Q1

REPORT INFORMATION
  Report Type: Report from Study
  Country: GB (occurrence: GB)
  Receive Date: 20101222
  Receipt Date: 20130201
  Transmission Date: 20140127
  Serious: Yes (Hospitalization)
  Sender: FDA-Public Use
  Company Number: GB-PFIZER INC-2010175283

PATIENT
  Age: 71 Year
  Sex: Male

DRUGS (6)
  1. SUNITINIB MALATE [Suspect]
     Indication: BLADDER CANCER
     Dosage: 12.5 MG, 1X/DAY
     Route: 048
     Dates: start: 20100929, end: 20101222
  2. CISPLATIN [Suspect]
     Indication: BLADDER CANCER
     Dosage: 70 MG/M2, (125 MG), UNK
     Route: 042
     Dates: start: 20100929
  3. GEMCITABINE [Suspect]
     Indication: BLADDER CANCER
     Dosage: 1000 MG/M2 (1330 MG), UNK
     Route: 042
     Dates: start: 20100929
  4. OMEPRAZOLE [Concomitant]
     Dosage: 20 MG, 1X/DAY
     Route: 048
  5. TAMSULOSIN [Concomitant]
     Dosage: 400 UG, 1X/DAY
     Route: 048
  6. ENOXAPARIN [Concomitant]
     Dosage: 40 MG, 1X/DAY
     Route: 058
     Dates: start: 20101203

REACTIONS (1)
  - Neutropenic sepsis [Recovered/Resolved with Sequelae]
